FAERS Safety Report 16457993 (Version 3)
Quarter: 2022Q2

REPORT INFORMATION
  Report Type: Spontaneous
  Country: US (occurrence: US)
  Receive Date: 20190620
  Receipt Date: 20220502
  Transmission Date: 20220721
  Serious: No
  Sender: FDA-Public Use
  Company Number: US-PFIZER INC-2019259901

PATIENT
  Age: 81 Year
  Sex: Female
  Weight: 83 kg

DRUGS (5)
  1. LYRICA [Suspect]
     Active Substance: PREGABALIN
     Indication: Fibromyalgia
     Dosage: 75 MG, DAILY [X 1 WEEK]
     Route: 048
  2. LYRICA [Suspect]
     Active Substance: PREGABALIN
     Dosage: 75 MG, 2X/DAY
     Route: 048
  3. LYRICA [Suspect]
     Active Substance: PREGABALIN
     Dosage: 75 MG, 1X/DAY
     Route: 048
  4. LYRICA [Suspect]
     Active Substance: PREGABALIN
     Dosage: 50 MG, DAILY [TAKE 1 CAPSULE (50 MG TOTAL) BY MOUTH EVERY DAY]
     Route: 048
  5. LYRICA [Suspect]
     Active Substance: PREGABALIN
     Dosage: 50 MG, 2X/DAY [TAKE 1 CAPSULE (50 MG TOTAL) BY MOUTH 2(TWO) TIMES DAILY]
     Route: 048
     Dates: end: 20210712

REACTIONS (6)
  - Intentional product misuse [Unknown]
  - Depression [Unknown]
  - Pain [Unknown]
  - Tenderness [Unknown]
  - Weight increased [Unknown]
  - Insomnia [Not Recovered/Not Resolved]
